APPROVED DRUG PRODUCT: VASCORAY
Active Ingredient: IOTHALAMATE MEGLUMINE; IOTHALAMATE SODIUM
Strength: 52%;26%
Dosage Form/Route: INJECTABLE;INJECTION
Application: N016783 | Product #001
Applicant: MALLINCKRODT MEDICAL INC
Approved: Approved Prior to Jan 1, 1982 | RLD: No | RS: No | Type: DISCN